FAERS Safety Report 21854652 (Version 1)
Quarter: 2023Q1

REPORT INFORMATION
  Report Type: Spontaneous
  Country: US (occurrence: US)
  Receive Date: 20230112
  Receipt Date: 20230112
  Transmission Date: 20230418
  Serious: No
  Sender: FDA-Public Use
  Company Number: US-PERRIGO-22US003790

PATIENT
  Age: 78 Year
  Sex: Female
  Weight: 99.773 kg

DRUGS (4)
  1. IBUPROFEN [Suspect]
     Active Substance: IBUPROFEN
     Indication: Myalgia
     Dosage: 400 TO 800 MG, BID TO TID
     Route: 048
     Dates: start: 20220103, end: 20220306
  2. MELOXICAM [Concomitant]
     Active Substance: MELOXICAM
     Indication: Myalgia
     Dosage: UNK
     Route: 065
     Dates: start: 20220223, end: 20220306
  3. VITAMIN D3 [Concomitant]
     Active Substance: CHOLECALCIFEROL
     Indication: Supplementation therapy
     Dosage: UNK
     Route: 065
     Dates: start: 2016
  4. VITAMINS NOS [Concomitant]
     Active Substance: VITAMINS
     Indication: Supplementation therapy
     Dosage: UNK
     Route: 065
     Dates: start: 2016

REACTIONS (2)
  - Haematochezia [Not Recovered/Not Resolved]
  - Incorrect dose administered [Recovered/Resolved]

NARRATIVE: CASE EVENT DATE: 20220103
